FAERS Safety Report 4302721-8 (Version None)
Quarter: 2004Q1

REPORT INFORMATION
  Report Type: 
  Country: None (occurrence: None)
  Receive Date: 20040220
  Receipt Date: 20040205
  Transmission Date: 20041129
  Serious: Yes (Hospitalization)
  Sender: FDA-Public Use
  Company Number: US-SHR-03-016744

PATIENT
  Age: 63 Year
  Sex: Female
  Weight: 60.8 kg

DRUGS (8)
  1. BETASERON [Suspect]
     Indication: MULTIPLE SCLEROSIS RELAPSE
     Dates: start: 19940613
  2. ACETYLSALICYLIC ACID SRT [Concomitant]
  3. THERAGRAN (VITAMINS NOS) [Concomitant]
  4. ESTRACE [Concomitant]
  5. CARDURA [Concomitant]
  6. DILANTIN [Concomitant]
  7. DETROL [Concomitant]
  8. ZANAFLEX [Concomitant]

REACTIONS (6)
  - FALL [None]
  - FIBULA FRACTURE [None]
  - MULTIPLE SCLEROSIS [None]
  - OSTEOPOROSIS [None]
  - PYREXIA [None]
  - TRAUMATIC FRACTURE [None]
